FAERS Safety Report 7955625-3 (Version None)
Quarter: 2011Q4

REPORT INFORMATION
  Report Type: 
  Country: None (occurrence: None)
  Receive Date: 20111203
  Receipt Date: 20111201
  Transmission Date: 20120403
  Serious: Yes (Death, Life-Threatening, Other)
  Sender: FDA-Public Use
  Company Number: JP-BRACCO-005312

PATIENT
  Sex: Female

DRUGS (2)
  1. IOPAMIDOL [Suspect]
     Indication: PULMONARY EMBOLISM
     Dosage: 3ML/SEC; ADMINISTERED AT 12:10 IN 29.3 SECS
     Route: 042
     Dates: start: 20111019, end: 20111019
  2. IOPAMIDOL [Suspect]
     Indication: COMPUTERISED TOMOGRAM
     Dosage: 3ML/SEC; ADMINISTERED AT 12:10 IN 29.3 SECS
     Route: 042
     Dates: start: 20111019, end: 20111019

REACTIONS (2)
  - ANAPHYLACTIC SHOCK [None]
  - PULMONARY EMBOLISM [None]
